FAERS Safety Report 11162851 (Version 1)
Quarter: 2015Q2

REPORT INFORMATION
  Report Type: Spontaneous
  Country: GB (occurrence: None)
  Receive Date: 20150602
  Receipt Date: 20150602
  Transmission Date: 20150821
  Serious: Yes (Other)
  Sender: FDA-Public Use
  Company Number: GB-DEXPHARM-20150333

PATIENT
  Age: 82 Year
  Sex: Male
  Weight: 70 kg

DRUGS (8)
  1. METFORMIN [Concomitant]
     Active Substance: METFORMIN HYDROCHLORIDE
  2. SIMVASTATIN. [Concomitant]
     Active Substance: SIMVASTATIN
  3. BISOPROLOL [Concomitant]
     Active Substance: BISOPROLOL
  4. LISINOPRIL. [Concomitant]
     Active Substance: LISINOPRIL
  5. ASPIRIN. [Concomitant]
     Active Substance: ASPIRIN
  6. COMBODART [Concomitant]
     Active Substance: DUTASTERIDE\TAMSULOSIN
  7. GLICLAZIDE [Concomitant]
     Active Substance: GLICLAZIDE
  8. OMEPRAZOLE. [Suspect]
     Active Substance: OMEPRAZOLE
     Dates: start: 201201, end: 201503

REACTIONS (5)
  - Depression [None]
  - Ageusia [None]
  - Abnormal loss of weight [None]
  - Decreased appetite [None]
  - Hyperchlorhydria [None]

NARRATIVE: CASE EVENT DATE: 201502
